FAERS Safety Report 4789512-9 (Version None)
Quarter: 2005Q4

REPORT INFORMATION
  Report Type: 
  Country: None (occurrence: None)
  Receive Date: 20051005
  Receipt Date: 20051005
  Transmission Date: 20060501
  Serious: Yes (Life-Threatening, Hospitalization)
  Sender: FDA-Public Use
  Company Number: None

PATIENT
  Age: 70 Year
  Sex: Female

DRUGS (3)
  1. IBUPROFEN [Suspect]
     Indication: PAIN
     Dosage: 600 MG PO Q6 HRS
     Route: 048
  2. ASPIRIN [Concomitant]
  3. PRAVASTATIN [Concomitant]

REACTIONS (6)
  - DIARRHOEA [None]
  - FAECES DISCOLOURED [None]
  - GASTROENTERITIS [None]
  - NAUSEA [None]
  - ULCER [None]
  - VOMITING [None]
